FAERS Safety Report 7073253-1 (Version None)
Quarter: 2010Q4

REPORT INFORMATION
  Report Type: 
  Country: None (occurrence: None)
  Receive Date: 20101029
  Receipt Date: 20100517
  Transmission Date: 20110411
  Serious: No
  Sender: FDA-Public Use
  Company Number: A0860017A

PATIENT
  Age: 60 Year
  Sex: Female

DRUGS (3)
  1. ADVAIR DISKUS 100/50 [Suspect]
     Indication: ASTHMA
     Dosage: 2PUFF TWICE PER DAY
     Route: 055
  2. SYNTHROID [Concomitant]
  3. NEBULIZER [Concomitant]

REACTIONS (7)
  - ADVERSE EVENT [None]
  - LIP SWELLING [None]
  - OROPHARYNGEAL DISCOMFORT [None]
  - OVERDOSE [None]
  - RASH [None]
  - STOMATITIS [None]
  - VIRAL INFECTION [None]
